FAERS Safety Report 15625591 (Version 2)
Quarter: 2018Q4

REPORT INFORMATION
  Report Type: Spontaneous
  Country: JP (occurrence: JP)
  Receive Date: 20181116
  Receipt Date: 20181221
  Transmission Date: 20190205
  Serious: Yes (Other)
  Sender: FDA-Public Use
  Company Number: PHJP2018JP019102

PATIENT
  Age: 58 Year
  Sex: Male

DRUGS (1)
  1. GLIVEC [Suspect]
     Active Substance: IMATINIB MESYLATE
     Indication: CHRONIC MYELOID LEUKAEMIA
     Dosage: 300-400 MG, QD
     Route: 048

REACTIONS (3)
  - Beta-N-acetyl-D-glucosaminidase increased [Unknown]
  - Glomerular filtration rate decreased [Unknown]
  - Renal tubular disorder [Unknown]
